FAERS Safety Report 19716648 (Version 6)
Quarter: 2021Q3

REPORT INFORMATION
  Report Type: Report from Study
  Country: FR (occurrence: FR)
  Receive Date: 20210819
  Receipt Date: 20210921
  Transmission Date: 20211014
  Serious: Yes (Hospitalization)
  Sender: FDA-Public Use
  Company Number: FR-INSMED, INC.-2021-09204-FR

PATIENT
  Age: 72 Year
  Sex: Female

DRUGS (3)
  1. ARIKAYCE [Suspect]
     Active Substance: AMIKACIN
     Indication: MYCOBACTERIUM AVIUM COMPLEX INFECTION
     Dosage: 590 MILLIGRAM
     Route: 055
     Dates: start: 20210806, end: 20210811
  2. ARIKAYCE [Suspect]
     Active Substance: AMIKACIN
     Dosage: 590 MILLIGRAM, QD
     Route: 055
     Dates: start: 202108, end: 202108
  3. ARIKAYCE [Suspect]
     Active Substance: AMIKACIN
     Dosage: 590 MILLIGRAM, 6 INHALATIONS PER WEEK
     Route: 055
     Dates: start: 202108

REACTIONS (16)
  - Dysphonia [Unknown]
  - Hypophagia [Unknown]
  - Oropharyngeal pain [Unknown]
  - Fatigue [Unknown]
  - Gastrooesophageal reflux disease [Not Recovered/Not Resolved]
  - Nausea [Unknown]
  - Off label use [Unknown]
  - Aphonia [Unknown]
  - Productive cough [Unknown]
  - Product dose omission issue [Unknown]
  - Hospitalisation [Unknown]
  - Insomnia [Unknown]
  - Throat irritation [Unknown]
  - Product dose omission in error [Unknown]
  - Abdominal pain [Unknown]
  - Liquid product physical issue [Unknown]

NARRATIVE: CASE EVENT DATE: 20210806
